FAERS Safety Report 12386034 (Version 1)
Quarter: 2016Q2

REPORT INFORMATION
  Report Type: Report from Study
  Country: AU (occurrence: AU)
  Receive Date: 20160519
  Receipt Date: 20160519
  Transmission Date: 20160815
  Serious: Yes (Other)
  Sender: FDA-Public Use
  Company Number: AU-ABBVIE-16K-008-1628219-00

PATIENT
  Sex: Female

DRUGS (1)
  1. HUMIRA [Suspect]
     Active Substance: ADALIMUMAB
     Indication: RHEUMATOID ARTHRITIS
     Route: 058
     Dates: start: 20160303, end: 20160511

REACTIONS (4)
  - Skin exfoliation [Unknown]
  - Insomnia [Unknown]
  - Blindness [Unknown]
  - Pruritus [Unknown]

NARRATIVE: CASE EVENT DATE: 2016
